FAERS Safety Report 7117820-5 (Version None)
Quarter: 2010Q4

REPORT INFORMATION
  Report Type: 
  Country: None (occurrence: None)
  Receive Date: 20101118
  Receipt Date: 20101118
  Transmission Date: 20110411
  Serious: Yes (Disabling, Other)
  Sender: FDA-Public Use
  Company Number: None

PATIENT
  Sex: Female
  Weight: 70.3075 kg

DRUGS (1)
  1. THYROID TAB [Suspect]
     Indication: HYPOTHYROIDISM
     Dosage: 30MG TO 1 A DAY; 90 MG 1 A DAY
     Dates: start: 20100316, end: 20101018

REACTIONS (5)
  - AGEUSIA [None]
  - DRUG DOSE OMISSION [None]
  - GASTRIC DISORDER [None]
  - GASTROINTESTINAL DISORDER [None]
  - PRODUCT SUBSTITUTION ISSUE [None]
